FAERS Safety Report 9171014 (Version 1)
Quarter: 2013Q1

REPORT INFORMATION
  Report Type: Spontaneous
  Country: US (occurrence: US)
  Receive Date: 20130319
  Receipt Date: 20130319
  Transmission Date: 20140127
  Serious: No
  Sender: FDA-Public Use
  Company Number: US-BAYER-2013-028729

PATIENT
  Age: 80 Year
  Sex: Female

DRUGS (11)
  1. AVELOX [Suspect]
     Indication: PNEUMONIA
     Dosage: 400 MG, QD (ONCE DAILY)
     Route: 048
     Dates: start: 20130301, end: 20130303
  2. CAPTOPRIL [Concomitant]
  3. PRILOSEC [Concomitant]
  4. SYNTHROID [Concomitant]
  5. PLAQUENIL [Concomitant]
  6. PROCARDIA [Concomitant]
  7. PREDNISONE [Concomitant]
  8. MULTIVITAMIN [Concomitant]
  9. QVAR [Concomitant]
  10. SYMBICORT [Concomitant]
  11. PROVENTIL [Concomitant]

REACTIONS (5)
  - Diarrhoea [Recovered/Resolved]
  - Retching [Recovered/Resolved]
  - Constipation [Recovered/Resolved]
  - Abdominal pain upper [Recovered/Resolved]
  - Vomiting [Recovered/Resolved]
